FAERS Safety Report 18991514 (Version 1)
Quarter: 2021Q1

REPORT INFORMATION
  Report Type: Spontaneous
  Country: DE (occurrence: DE)
  Receive Date: 20210310
  Receipt Date: 20210310
  Transmission Date: 20210420
  Serious: Yes (Hospitalization)
  Sender: FDA-Public Use
  Company Number: DE-TEVA-2021-DE-1887303

PATIENT
  Age: 65 Year
  Sex: Male
  Weight: 95 kg

DRUGS (10)
  1. DOCETAXEL. [Suspect]
     Active Substance: DOCETAXEL
     Dosage: 062020
     Route: 065
  2. PANTOPRAZOL [Concomitant]
     Active Substance: PANTOPRAZOLE SODIUM
     Dosage: 40 MILLIGRAM DAILY; 1?0?0?0
  3. FLUOROURACIL. [Suspect]
     Active Substance: FLUOROURACIL
     Dosage: LAST GIFT ON 11082020
     Route: 065
  4. CARBOPLATIN. [Suspect]
     Active Substance: CARBOPLATIN
     Dosage: 062020
     Route: 065
  5. AMLODIPIN [Concomitant]
     Active Substance: AMLODIPINE BESYLATE
     Dosage: .5 DOSAGE FORMS DAILY; 10 MG, 0?0?0.5?0
  6. PACLITAXEL. [Suspect]
     Active Substance: PACLITAXEL
     Dosage: LAST GIFT 11032020
     Route: 065
  7. IRINOTECAN [Suspect]
     Active Substance: IRINOTECAN
     Dosage: LAST GIFT ON 11082020
     Route: 065
  8. FOLINSAURE [Suspect]
     Active Substance: LEUCOVORIN
     Dosage: LAST GIFT ON 11082020
     Route: 065
  9. ENALAPRIL [Concomitant]
     Active Substance: ENALAPRIL
     Dosage: 30 MG, 0.6?0?0.3?0
  10. METOCLOPRAMID [Concomitant]
     Active Substance: METOCLOPRAMIDE
     Dosage: 30 MILLIGRAM DAILY; 1?1?1?0

REACTIONS (9)
  - Dizziness [Unknown]
  - Nausea [Unknown]
  - Malaise [Unknown]
  - Leukopenia [Unknown]
  - Peripheral coldness [Unknown]
  - Anaemia [Unknown]
  - General physical health deterioration [Unknown]
  - Paraesthesia [Unknown]
  - Sleep disorder [Unknown]
